FAERS Safety Report 21217988 (Version 1)
Quarter: 2022Q3

REPORT INFORMATION
  Report Type: Spontaneous
  Country: US (occurrence: None)
  Receive Date: 20220815
  Receipt Date: 20220815
  Transmission Date: 20221027
  Serious: No
  Sender: FDA-Public Use
  Company Number: None

PATIENT
  Sex: Female

DRUGS (1)
  1. ICATIBANT ACETATE [Suspect]
     Active Substance: ICATIBANT ACETATE
     Indication: Idiopathic urticaria
     Dosage: 30MG AS NEEDED UNDER THE SKIN?
     Route: 058
     Dates: start: 20190807

REACTIONS (3)
  - Swelling face [None]
  - Blood sodium decreased [None]
  - Feeling abnormal [None]
